FAERS Safety Report 7918142-2 (Version None)
Quarter: 2011Q4

REPORT INFORMATION
  Report Type: 
  Country: None (occurrence: None)
  Receive Date: 20111116
  Receipt Date: 20111102
  Transmission Date: 20120403
  Serious: No
  Sender: FDA-Public Use
  Company Number: US-B.I. PHARMACEUTICALS,INC./RIDGEFIELD-2011-BP-25522BP

PATIENT
  Sex: Female

DRUGS (6)
  1. SIMVASTATIN [Concomitant]
     Indication: BLOOD CHOLESTEROL INCREASED
     Dosage: 40 MG
     Route: 048
     Dates: start: 20100101
  2. DICYCLOMINE [Concomitant]
     Indication: COLITIS
     Route: 048
  3. SPIRIVA [Concomitant]
     Indication: CARDIAC FAILURE CONGESTIVE
     Route: 055
  4. PRADAXA [Suspect]
     Indication: ATRIAL FIBRILLATION
     Dosage: 300 MG
     Route: 048
     Dates: start: 20110801, end: 20110801
  5. PRADAXA [Suspect]
     Dosage: 150 MG
     Route: 048
     Dates: start: 20110801
  6. ESTRADIOL [Concomitant]
     Indication: ATROPHIC VULVOVAGINITIS
     Route: 048

REACTIONS (3)
  - BALANCE DISORDER [None]
  - FEELING ABNORMAL [None]
  - COAGULATION TIME PROLONGED [None]
